FAERS Safety Report 5893489-2 (Version None)
Quarter: 2008Q3

REPORT INFORMATION
  Report Type: 
  Country: None (occurrence: None)
  Receive Date: 20080919
  Receipt Date: 20080908
  Transmission Date: 20090109
  Serious: Yes (Death, Hospitalization)
  Sender: FDA-Public Use
  Company Number: WAES 0807FRA00038

PATIENT
  Age: 63 Year
  Sex: Male

DRUGS (18)
  1. CAP VORINOSTAT [Suspect]
     Indication: NON-SMALL CELL LUNG CANCER
     Dosage: 400 MG/DAILY PO
     Route: 048
     Dates: start: 20080630
  2. GEMCITABINE [Suspect]
     Indication: NON-SMALL CELL LUNG CANCER
     Dosage: 1990 MG/DAILY IV, IV
     Route: 042
     Dates: start: 20080702, end: 20080702
  3. GEMCITABINE [Suspect]
     Indication: NON-SMALL CELL LUNG CANCER
     Dosage: 1990 MG/DAILY IV, IV
     Route: 042
     Dates: start: 20080709, end: 20080709
  4. GEMCITABINE [Suspect]
     Indication: NON-SMALL CELL LUNG CANCER
     Dosage: 1990 MG/DAILY IV, IV
     Route: 042
     Dates: start: 20080730, end: 20080730
  5. GEMCITABINE [Suspect]
     Indication: NON-SMALL CELL LUNG CANCER
     Dosage: 1990 MG/DAILY IV, IV
     Route: 042
     Dates: start: 20080806, end: 20080806
  6. GEMCITABINE [Suspect]
     Indication: NON-SMALL CELL LUNG CANCER
     Dosage: 1990 MG/DAILY IV, IV
     Route: 042
     Dates: start: 20080820, end: 20080820
  7. GEMCITABINE [Suspect]
     Indication: NON-SMALL CELL LUNG CANCER
     Dosage: 1990 MG/DAILY IV, IV
     Route: 042
     Dates: start: 20080827, end: 20080827
  8. CISPLATIN [Suspect]
     Indication: NON-SMALL CELL LUNG CANCER
     Dosage: IV
     Route: 042
     Dates: start: 20080702, end: 20080702
  9. METHYLPREDNISOLONE [Suspect]
     Indication: PROPHYLAXIS OF NAUSEA AND VOMITING
     Dosage: 60 MG/DAILY PO
     Route: 048
     Dates: start: 20080702, end: 20080702
  10. CARBOPLATIN [Suspect]
     Indication: NON-SMALL CELL LUNG CANCER
     Dosage: 390 MG/DAILY IV
     Route: 042
     Dates: start: 20080730, end: 20080730
  11. CARBOPLATIN [Suspect]
     Indication: NON-SMALL CELL LUNG CANCER
     Dosage: 390 MG/DAILY IV
     Route: 042
     Dates: start: 20080820, end: 20080820
  12. ATORVASTATIN CALCIUM [Concomitant]
  13. BROMAZEPAM [Concomitant]
  14. LEVOTHYROXINE SODIUM [Concomitant]
  15. MIANSERIN HCL [Concomitant]
  16. ONDANSETRON [Concomitant]
  17. TIOTROPIUM BROMIDE [Concomitant]
  18. ZOPICLONE [Concomitant]

REACTIONS (5)
  - BETA HAEMOLYTIC STREPTOCOCCAL INFECTION [None]
  - HYPERGLYCAEMIA [None]
  - PLATELET COUNT DECREASED [None]
  - SEPTIC SHOCK [None]
  - WHITE BLOOD CELL COUNT DECREASED [None]
